FAERS Safety Report 17294409 (Version 2)
Quarter: 2020Q2

REPORT INFORMATION
  Report Type: Spontaneous
  Country: US (occurrence: US)
  Receive Date: 20200121
  Receipt Date: 20200407
  Transmission Date: 20200713
  Serious: Yes (Other)
  Sender: FDA-Public Use
  Company Number: US-GILEAD-2020-0447109

PATIENT
  Age: 56 Year
  Sex: Male

DRUGS (24)
  1. MULTI VIT [Concomitant]
     Active Substance: VITAMINS
  2. TRICOR [ADENOSINE] [Concomitant]
     Active Substance: ADENOSINE
  3. ZITHROMAX [Concomitant]
     Active Substance: AZITHROMYCIN DIHYDRATE
  4. IBUPROFEN. [Concomitant]
     Active Substance: IBUPROFEN
  5. FAMOTIDINE. [Concomitant]
     Active Substance: FAMOTIDINE
  6. EPIPEN [Concomitant]
     Active Substance: EPINEPHRINE
  7. LOVENOX [LEVOFLOXACIN] [Concomitant]
     Active Substance: LEVOFLOXACIN
  8. TRUVADA [Suspect]
     Active Substance: EMTRICITABINE\TENOFOVIR DISOPROXIL FUMARATE
     Indication: HIV INFECTION
     Dosage: UNK
     Route: 048
     Dates: start: 20080812, end: 2013
  9. STRIBILD [Suspect]
     Active Substance: COBICISTAT\ELVITEGRAVIR\EMTRICITABINE\TENOFOVIR DISOPROXIL FUMARATE
     Indication: HIV INFECTION
     Dosage: UNK
     Route: 048
     Dates: start: 20150909
  10. SULFATRIM [SULFADIAZINE;TRIMETHOPRIM] [Concomitant]
     Active Substance: SULFADIAZINE\TRIMETHOPRIM
  11. ZERIT [Concomitant]
     Active Substance: STAVUDINE
  12. VIDEX EC [Concomitant]
     Active Substance: DIDANOSINE
  13. KALETRA [Concomitant]
     Active Substance: LOPINAVIR\RITONAVIR
  14. GEMFIBROZIL. [Concomitant]
     Active Substance: GEMFIBROZIL
  15. FENOFIBRATE. [Concomitant]
     Active Substance: FENOFIBRATE
  16. VIREAD [Suspect]
     Active Substance: TENOFOVIR DISOPROXIL FUMARATE
     Indication: HIV INFECTION
     Dosage: UNK
     Route: 048
     Dates: start: 20020618, end: 2007
  17. AMOXICILLIN/CLAVULANIC ACID [Concomitant]
     Active Substance: AMOXICILLIN\CLAVULANIC ACID
  18. AZITHROMYCIN ANHYDROUS. [Concomitant]
     Active Substance: AZITHROMYCIN ANHYDROUS
  19. HAVRIX [Concomitant]
     Active Substance: HEPATITIS A VIRUS STRAIN HM175 ANTIGEN (FORMALDEHYDE INACTIVATED)
  20. OXYCODONE [Concomitant]
     Active Substance: OXYCODONE
  21. LOVAZA [Concomitant]
     Active Substance: OMEGA-3-ACID ETHYL ESTERS
  22. DIDANOSINE. [Concomitant]
     Active Substance: DIDANOSINE
  23. DIPHENHYDRAMIN [Concomitant]
     Active Substance: DIPHENHYDRAMINE
  24. PREDNISONE. [Concomitant]
     Active Substance: PREDNISONE

REACTIONS (9)
  - Emotional distress [Unknown]
  - Anhedonia [Unknown]
  - Osteopenia [Unknown]
  - Anxiety [Unknown]
  - Osteonecrosis [Unknown]
  - Chronic kidney disease [Unknown]
  - Pain [Unknown]
  - Economic problem [Unknown]
  - Osteoporosis [Unknown]
